FAERS Safety Report 20840227 (Version 1)
Quarter: 2022Q2

REPORT INFORMATION
  Report Type: Spontaneous
  Country: US (occurrence: None)
  Receive Date: 20220516
  Receipt Date: 20220516
  Transmission Date: 20220720
  Serious: Yes (Other)
  Sender: FDA-Public Use
  Company Number: None

PATIENT
  Age: 63 Year
  Sex: Male

DRUGS (1)
  1. ABIRATERONE [Suspect]
     Active Substance: ABIRATERONE
     Indication: Prostate cancer
     Dosage: 100 MG DAILY ORAL
     Route: 048
     Dates: start: 202201

REACTIONS (2)
  - Inappropriate schedule of product administration [None]
  - Wrong technique in product usage process [None]

NARRATIVE: CASE EVENT DATE: 20220418
